FAERS Safety Report 4653656-2 (Version None)
Quarter: 2005Q2

REPORT INFORMATION
  Report Type: 
  Country: None (occurrence: None)
  Receive Date: 20050505
  Receipt Date: 20050421
  Transmission Date: 20051028
  Serious: Yes (Life-Threatening, Hospitalization)
  Sender: FDA-Public Use
  Company Number: JP-JNJFOC-20050406254

PATIENT
  Age: 53 Year
  Sex: Male

DRUGS (2)
  1. CRAVIT [Suspect]
     Indication: BRONCHITIS CHRONIC
     Route: 049
     Dates: start: 20050308, end: 20050316
  2. RIMATIL [Concomitant]
     Route: 049

REACTIONS (1)
  - INTERSTITIAL LUNG DISEASE [None]
